FAERS Safety Report 8431613-8 (Version None)
Quarter: 2012Q2

REPORT INFORMATION
  Report Type: 
  Country: None (occurrence: None)
  Receive Date: 20120613
  Receipt Date: 20120605
  Transmission Date: 20120825
  Serious: Yes (Hospitalization)
  Sender: FDA-Public Use
  Company Number: US-US-EMD SERONO, INC.-7138580

PATIENT
  Sex: Female

DRUGS (4)
  1. REBIF [Suspect]
     Route: 058
     Dates: start: 20120521
  2. REBIF [Suspect]
     Indication: MULTIPLE SCLEROSIS
     Route: 058
     Dates: start: 20020101, end: 20111101
  3. OVER THE COUNTER ANALGESIC [Concomitant]
     Indication: PREMEDICATION
  4. UNSPECIFIED MEDICATION [Concomitant]
     Indication: ANTICOAGULANT THERAPY

REACTIONS (4)
  - DYSPHAGIA [None]
  - INJECTION SITE DISCOLOURATION [None]
  - FACIAL PAIN [None]
  - INJECTION SITE ERYTHEMA [None]
